FAERS Safety Report 10473440 (Version 3)
Quarter: 2014Q4

REPORT INFORMATION
  Report Type: Spontaneous
  Country: US (occurrence: US)
  Receive Date: 20140924
  Receipt Date: 20141030
  Transmission Date: 20150528
  Serious: Yes (Other)
  Sender: FDA-Public Use
  Company Number: US-BAYER-2014-141964

PATIENT
  Age: 34 Year
  Sex: Female
  Weight: 49.89 kg

DRUGS (1)
  1. MIRENA [Suspect]
     Active Substance: LEVONORGESTREL
     Indication: CONTRACEPTION
     Dosage: 20 MCG/24HR, CONT
     Route: 015
     Dates: start: 20081110, end: 20110321

REACTIONS (10)
  - Emotional distress [Not Recovered/Not Resolved]
  - Fear of disease [None]
  - Fear of pregnancy [None]
  - Device issue [None]
  - Uterine perforation [None]
  - Pain [None]
  - Device dislocation [None]
  - Genital haemorrhage [None]
  - Injury [None]
  - Mental disorder [Not Recovered/Not Resolved]

NARRATIVE: CASE EVENT DATE: 201103
